FAERS Safety Report 17717407 (Version 1)
Quarter: 2020Q2

REPORT INFORMATION
  Report Type: Spontaneous
  Country: US (occurrence: US)
  Receive Date: 20200428
  Receipt Date: 20200428
  Transmission Date: 20200714
  Serious: No
  Sender: FDA-Public Use
  Company Number: US-PFIZER INC-2020084982

PATIENT
  Age: 17 Year
  Sex: Female

DRUGS (1)
  1. XELJANZ [Suspect]
     Active Substance: TOFACITINIB CITRATE
     Dosage: 5 MG, TWICE A DAY
     Route: 048
     Dates: start: 20191201, end: 20200201

REACTIONS (4)
  - Anxiety [Unknown]
  - Panic attack [Unknown]
  - Product use issue [Unknown]
  - Off label use [Unknown]
